FAERS Safety Report 10518427 (Version 4)
Quarter: 2015Q2

REPORT INFORMATION
  Report Type: Report from Study
  Country: US (occurrence: US)
  Receive Date: 20141015
  Receipt Date: 20150430
  Transmission Date: 20150821
  Serious: No
  Sender: FDA-Public Use
  Company Number: US-ALEXION-A201403928

PATIENT

DRUGS (3)
  1. SOLIRIS [Suspect]
     Active Substance: ECULIZUMAB
     Dosage: 1200 MG, UNK
     Route: 042
     Dates: start: 20150413
  2. SOLIRIS [Suspect]
     Active Substance: ECULIZUMAB
     Dosage: 900 MG, Q12D
     Route: 042
     Dates: start: 201312
  3. SOLIRIS [Suspect]
     Active Substance: ECULIZUMAB
     Indication: PRODUCT USED FOR UNKNOWN INDICATION
     Dosage: 900 MG, Q2W
     Route: 042
     Dates: start: 200703, end: 201312

REACTIONS (4)
  - Headache [Recovered/Resolved]
  - Nasopharyngitis [Unknown]
  - Fatigue [Unknown]
  - Influenza [Unknown]

NARRATIVE: CASE EVENT DATE: 201409
